FAERS Safety Report 4521863-5 (Version None)
Quarter: 2004Q4

REPORT INFORMATION
  Report Type: 
  Country: None (occurrence: None)
  Receive Date: 20041206
  Receipt Date: 20041115
  Transmission Date: 20050328
  Serious: Yes (Hospitalization)
  Sender: FDA-Public Use
  Company Number: GBS041115951

PATIENT
  Age: 83 Year
  Sex: Female
  Weight: 46 kg

DRUGS (6)
  1. FLUOXETINE [Suspect]
     Indication: DEPRESSION
     Dosage: 20 MG
     Dates: end: 20041013
  2. BENDROFLUAZIDE [Concomitant]
  3. ADALAT (NIFEDIPINE PA) [Concomitant]
  4. SENNA [Concomitant]
  5. CEFUROXIME [Concomitant]
  6. AMILORIDE [Concomitant]

REACTIONS (1)
  - INAPPROPRIATE ANTIDIURETIC HORMONE SECRETION [None]
